FAERS Safety Report 21028806 (Version 2)
Quarter: 2022Q3

REPORT INFORMATION
  Report Type: Spontaneous
  Country: US (occurrence: US)
  Receive Date: 20220630
  Receipt Date: 20220727
  Transmission Date: 20221027
  Serious: Yes (Hospitalization)
  Sender: FDA-Public Use
  Company Number: US-GILEAD-2022-0587688

PATIENT
  Age: 27 Year
  Sex: Female
  Weight: 72.562 kg

DRUGS (5)
  1. AMBRISENTAN [Suspect]
     Active Substance: AMBRISENTAN
     Indication: Pulmonary arterial hypertension
     Dosage: UNK
     Route: 065
     Dates: end: 2022
  2. AMBRISENTAN [Suspect]
     Active Substance: AMBRISENTAN
     Indication: Pulmonary hypertension
  3. REMODULIN [Suspect]
     Active Substance: TREPROSTINIL
     Indication: Pulmonary arterial hypertension
     Dosage: 0.038 UG/KG
     Route: 042
     Dates: start: 20220314
  4. REMODULIN [Suspect]
     Active Substance: TREPROSTINIL
     Dosage: 0.040 UG/KG
     Route: 042
     Dates: start: 2022
  5. SILDENAFIL [Concomitant]
     Active Substance: SILDENAFIL

REACTIONS (6)
  - Alanine aminotransferase increased [Recovered/Resolved]
  - Cholelithiasis [Unknown]
  - Humidity intolerance [Unknown]
  - Dyspnoea exertional [Unknown]
  - Diarrhoea [Unknown]
  - Temperature intolerance [Unknown]

NARRATIVE: CASE EVENT DATE: 20220514
